FAERS Safety Report 8134439-8 (Version None)
Quarter: 2012Q1

REPORT INFORMATION
  Report Type: 
  Country: None (occurrence: None)
  Receive Date: 20120214
  Receipt Date: 20120214
  Transmission Date: 20120608
  Serious: Yes (Other)
  Sender: FDA-Public Use
  Company Number: None

PATIENT
  Age: 28 Year
  Sex: Female
  Weight: 64.863 kg

DRUGS (1)
  1. LIPO B WITH CARNITINE [Suspect]
     Indication: OBESITY
     Dosage: 2CC
     Route: 030
     Dates: start: 20120204, end: 20120204

REACTIONS (5)
  - ERYTHEMA [None]
  - PRURITUS GENERALISED [None]
  - MALAISE [None]
  - SWELLING FACE [None]
  - PRODUCT FORMULATION ISSUE [None]
